FAERS Safety Report 5527790-9 (Version None)
Quarter: 2007Q4

REPORT INFORMATION
  Report Type: 
  Country: None (occurrence: None)
  Receive Date: 20071128
  Receipt Date: 20071113
  Transmission Date: 20080405
  Serious: Yes (Hospitalization, Other)
  Sender: FDA-Public Use
  Company Number: US-JNJFOC-20070806008

PATIENT
  Sex: Female
  Weight: 65.32 kg

DRUGS (4)
  1. ULTRAM ER [Suspect]
     Indication: BONE PAIN
     Route: 048
  2. ULTRAM ER [Suspect]
     Indication: ARTHRITIS
     Route: 048
  3. MOBIC [Concomitant]
     Indication: PAIN
     Route: 065
  4. LYRICA [Concomitant]
     Indication: HERPES ZOSTER
     Route: 065

REACTIONS (4)
  - AGITATION [None]
  - BRONCHITIS [None]
  - CONFUSIONAL STATE [None]
  - SOMNOLENCE [None]
